FAERS Safety Report 5141727-6 (Version None)
Quarter: 2006Q4

REPORT INFORMATION
  Report Type: 
  Country: None (occurrence: None)
  Receive Date: 20061026
  Receipt Date: 20061016
  Transmission Date: 20070319
  Serious: Yes (Death, Hospitalization)
  Sender: FDA-Public Use
  Company Number: 430013L06USA

PATIENT
  Age: 64 Year
  Sex: Male

DRUGS (1)
  1. NOVANTRONE [Suspect]
     Dosage: 12 MG/M2, 1 N 3 WEEKS   6 COURSE; 5 MG, 2 IN 1 DAYS, ORAL

REACTIONS (9)
  - ABDOMINAL PAIN [None]
  - ACUTE MYELOID LEUKAEMIA [None]
  - GENERAL PHYSICAL HEALTH DETERIORATION [None]
  - HYPOTENSION [None]
  - HYPOXIA [None]
  - LUNG INFILTRATION [None]
  - MULTI-ORGAN FAILURE [None]
  - OPPORTUNISTIC INFECTION [None]
  - RENAL FAILURE [None]
